FAERS Safety Report 10236128 (Version 1)
Quarter: 2014Q2

REPORT INFORMATION
  Report Type: Spontaneous
  Country: US (occurrence: US)
  Receive Date: 20140613
  Receipt Date: 20140613
  Transmission Date: 20141212
  Serious: Yes (Hospitalization, Other)
  Sender: FDA-Public Use
  Company Number: US-JNJFOC-20140603172

PATIENT
  Age: 91 Year
  Sex: Female

DRUGS (13)
  1. QUETIAPINE [Suspect]
     Indication: AGITATION
     Dosage: 25 TO 50 MG TWICE A DAY
     Route: 065
  2. TRAZODONE [Suspect]
     Indication: AGITATION
     Dosage: 25 TO 50 MG TWICE A DAY
     Route: 065
  3. ARIPIPRAZOLE [Suspect]
     Indication: AGITATION
     Dosage: 25 TO 50 MG TWICE A DAY
     Route: 065
  4. ARIPIPRAZOLE [Suspect]
     Indication: AGITATION
     Route: 065
  5. HALOPERIDOL [Suspect]
     Indication: AGITATION
     Route: 065
  6. HALOPERIDOL [Suspect]
     Indication: PARANOIA
     Route: 030
  7. HALOPERIDOL [Suspect]
     Indication: PARANOIA
     Route: 030
  8. HALOPERIDOL [Suspect]
     Indication: AGITATION
     Route: 030
  9. HALOPERIDOL [Suspect]
     Indication: AGITATION
     Route: 030
  10. HALOPERIDOL [Suspect]
     Indication: DELIRIUM
     Route: 030
  11. HALOPERIDOL [Suspect]
     Indication: DELIRIUM
     Route: 030
  12. CLONAZEPAM [Suspect]
     Indication: AGITATION
     Route: 065
  13. CLONAZEPAM [Suspect]
     Indication: AGITATION
     Route: 065

REACTIONS (8)
  - Akathisia [Recovered/Resolved]
  - Agitation [Recovered/Resolved]
  - Paranoia [Recovered/Resolved]
  - Hallucination [Recovered/Resolved]
  - Dyskinesia [Recovered/Resolved]
  - Gait disturbance [Recovered/Resolved]
  - Drug ineffective [Recovered/Resolved]
  - Inappropriate schedule of drug administration [Recovered/Resolved]
